FAERS Safety Report 9972616 (Version 1)
Quarter: 2014Q1

REPORT INFORMATION
  Report Type: Report from Study
  Country: US (occurrence: US)
  Receive Date: 20140306
  Receipt Date: 20140306
  Transmission Date: 20141002
  Serious: No
  Sender: FDA-Public Use
  Company Number: US-ABBVIE-13P-163-1154416-00

PATIENT
  Age: 44 Year
  Sex: Female

DRUGS (5)
  1. HUMIRA [Suspect]
     Indication: COLITIS ULCERATIVE
     Dosage: 160MG LOADING DOSE
     Dates: start: 20130930, end: 20130930
  2. HUMIRA [Suspect]
     Dosage: 160MG LOADING DOSE
  3. PREDNISONE [Concomitant]
     Indication: COLITIS ULCERATIVE
     Dosage: 30MG DAILY
     Route: 048
  4. AMITRIPTYLINE [Concomitant]
     Indication: COLITIS ULCERATIVE
     Dosage: 25MG DAILY
     Route: 048
  5. CITALOPRAM [Concomitant]
     Indication: MENTAL IMPAIRMENT
     Dosage: 20MG DAILY
     Route: 048

REACTIONS (3)
  - Chills [Not Recovered/Not Resolved]
  - Hyperhidrosis [Not Recovered/Not Resolved]
  - Impaired work ability [Not Recovered/Not Resolved]
